FAERS Safety Report 17419649 (Version 1)
Quarter: 2020Q1

REPORT INFORMATION
  Report Type: Spontaneous
  Country: US (occurrence: US)
  Receive Date: 20200214
  Receipt Date: 20200214
  Transmission Date: 20200409
  Serious: No
  Sender: FDA-Public Use
  Company Number: None

PATIENT
  Age: 37 Year
  Sex: Female
  Weight: 71.1 kg

DRUGS (1)
  1. VISIPAQUE [Suspect]
     Active Substance: IODIXANOL
     Dosage: ?          OTHER FREQUENCY:ONCE FOR IMAGING;?
     Route: 042
     Dates: start: 20200213, end: 20200214

REACTIONS (1)
  - Erythema [None]

NARRATIVE: CASE EVENT DATE: 20200213
